FAERS Safety Report 23250822 (Version 2)
Quarter: 2023Q4

REPORT INFORMATION
  Report Type: Spontaneous
  Country: GB (occurrence: GB)
  Receive Date: 20231201
  Receipt Date: 20231220
  Transmission Date: 20240110
  Serious: Yes (Other)
  Sender: FDA-Public Use
  Company Number: GB-BAYER-2023A168043

PATIENT
  Age: 48 Year
  Sex: Male

DRUGS (2)
  1. NUBEQA [Suspect]
     Active Substance: DAROLUTAMIDE
     Indication: Hormone-dependent prostate cancer
     Dosage: 300 MG, BID
     Route: 048
     Dates: start: 20231018, end: 20231021
  2. DOCETAXEL [Concomitant]
     Active Substance: DOCETAXEL\DOCETAXEL ANHYDROUS
     Dosage: UNK
     Dates: start: 20231108

REACTIONS (4)
  - Blood alkaline phosphatase increased [Recovering/Resolving]
  - Alanine aminotransferase increased [Recovering/Resolving]
  - Blood bilirubin increased [Recovering/Resolving]
  - Off label use [None]

NARRATIVE: CASE EVENT DATE: 20231018
